FAERS Safety Report 10886532 (Version 1)
Quarter: 2015Q1

REPORT INFORMATION
  Report Type: Spontaneous
  Country: US (occurrence: US)
  Receive Date: 20150304
  Receipt Date: 20150304
  Transmission Date: 20150721
  Serious: Yes (Hospitalization, Other)
  Sender: FDA-Public Use
  Company Number: US-GLAXOSMITHKLINE-US2015GSK027956

PATIENT
  Age: 25 Year
  Sex: Male

DRUGS (1)
  1. NELARABINE [Suspect]
     Active Substance: NELARABINE
     Indication: CHEMOTHERAPY
     Route: 037

REACTIONS (8)
  - Asthenia [Not Recovered/Not Resolved]
  - Paresis [Unknown]
  - Spinal disorder [Unknown]
  - Gait disturbance [Unknown]
  - Neuropathy peripheral [Unknown]
  - Neurotoxicity [Unknown]
  - Paraesthesia [Unknown]
  - Muscular weakness [Unknown]
